FAERS Safety Report 24117378 (Version 1)
Quarter: 2024Q3

REPORT INFORMATION
  Report Type: Spontaneous
  Country: US (occurrence: US)
  Receive Date: 20240722
  Receipt Date: 20240722
  Transmission Date: 20241016
  Serious: No
  Sender: AJANTA PHARMA
  Company Number: US-AJANTA-2024AJA00089

PATIENT
  Age: 81 Year
  Sex: Male
  Weight: 180 kg

DRUGS (2)
  1. CHLORTHALIDONE [Suspect]
     Active Substance: CHLORTHALIDONE
     Indication: Peripheral swelling
     Dates: end: 2024
  2. CHLORTHALIDONE [Suspect]
     Active Substance: CHLORTHALIDONE
     Dosage: HALF TABLET OF 25 MG

REACTIONS (5)
  - Polyuria [Recovered/Resolved]
  - Hypovitaminosis [Unknown]
  - Dizziness [Unknown]
  - Hyponatraemia [Unknown]
  - Wrong technique in product usage process [Unknown]

NARRATIVE: CASE EVENT DATE: 20240101
